FAERS Safety Report 15497601 (Version 4)
Quarter: 2019Q1

REPORT INFORMATION
  Report Type: Report from Study
  Country: None (occurrence: US)
  Receive Date: 20181015
  Receipt Date: 20190228
  Transmission Date: 20190417
  Serious: Yes (Hospitalization, Other)
  Sender: FDA-Public Use
  Company Number: US-ABBVIE-18K-163-2517911-00

PATIENT
  Sex: Female

DRUGS (2)
  1. HUMIRA [Suspect]
     Active Substance: ADALIMUMAB
     Indication: COLITIS ULCERATIVE
     Route: 058
  2. HUMIRA [Suspect]
     Active Substance: ADALIMUMAB
     Indication: CROHN^S DISEASE

REACTIONS (15)
  - Systemic lupus erythematosus [Unknown]
  - Rales [Unknown]
  - Respiratory disorder [Unknown]
  - Skin discolouration [Unknown]
  - Nodule [Unknown]
  - Peripheral coldness [Unknown]
  - Fall [Unknown]
  - Pericarditis [Unknown]
  - Joint injury [Unknown]
  - Skin ulcer [Unknown]
  - Arthritis [Unknown]
  - Scoliosis [Unknown]
  - Pulmonary oedema [Unknown]
  - Spinal fracture [Unknown]
  - Influenza [Unknown]

NARRATIVE: CASE EVENT DATE: 2018
